FAERS Safety Report 4435332-4 (Version None)
Quarter: 2004Q3

REPORT INFORMATION
  Report Type: 
  Country: None (occurrence: None)
  Receive Date: 20040827
  Receipt Date: 20040820
  Transmission Date: 20050211
  Serious: Yes (Hospitalization, Other)
  Sender: FDA-Public Use
  Company Number: US-JNJFOC-20040607857

PATIENT
  Sex: Female

DRUGS (3)
  1. DURAGESIC [Suspect]
     Route: 062
  2. DURAGESIC [Suspect]
     Route: 062
  3. DILANTIN [Concomitant]

REACTIONS (3)
  - DIABETIC ULCER [None]
  - INFECTED SKIN ULCER [None]
  - MENINGIOMA [None]
